FAERS Safety Report 6963997-1 (Version None)
Quarter: 2010Q3

REPORT INFORMATION
  Report Type: 
  Country: None (occurrence: None)
  Receive Date: 20100902
  Receipt Date: 20100902
  Transmission Date: 20110219
  Serious: Yes (Other)
  Sender: FDA-Public Use
  Company Number: None

PATIENT
  Age: 58 Year
  Sex: Female
  Weight: 76.8 kg

DRUGS (1)
  1. LIPITOR [Suspect]
     Dosage: 20MG DAILY 047

REACTIONS (1)
  - MYALGIA [None]
